FAERS Safety Report 12539988 (Version 5)
Quarter: 2016Q3

REPORT INFORMATION
  Report Type: Spontaneous
  Country: US (occurrence: US)
  Receive Date: 20160708
  Receipt Date: 20160930
  Transmission Date: 20161109
  Serious: No
  Sender: FDA-Public Use
  Company Number: US-GLAXOSMITHKLINE-US2016090888

PATIENT
  Sex: Female

DRUGS (3)
  1. ADVAIR DISKUS [Suspect]
     Active Substance: FLUTICASONE PROPIONATE\SALMETEROL XINAFOATE
     Indication: PRODUCT USED FOR UNKNOWN INDICATION
  2. VENTOLIN HFA [Suspect]
     Active Substance: ALBUTEROL SULFATE
     Indication: ASTHMA
     Dosage: UNK
     Dates: start: 2006
  3. ADVAIR DISKUS [Suspect]
     Active Substance: FLUTICASONE PROPIONATE\SALMETEROL XINAFOATE
     Dosage: UNK
     Dates: start: 20160806, end: 20160811

REACTIONS (27)
  - Dysgeusia [Unknown]
  - Vulvovaginal pruritus [Unknown]
  - Sneezing [Unknown]
  - Emotional disorder [Unknown]
  - Back pain [Unknown]
  - Vulvovaginal mycotic infection [Unknown]
  - Mania [Unknown]
  - Throat irritation [Unknown]
  - Cough [Unknown]
  - Ill-defined disorder [Unknown]
  - Fungal infection [Unknown]
  - Vaginal discharge [Unknown]
  - Headache [Unknown]
  - Bronchitis [Unknown]
  - Arthralgia [Unknown]
  - Muscle spasms [Unknown]
  - Dysphonia [Unknown]
  - Drug ineffective [Unknown]
  - Increased appetite [Unknown]
  - Insomnia [Unknown]
  - Dizziness [Unknown]
  - Vertigo [Unknown]
  - Nasopharyngitis [Unknown]
  - Fatigue [Unknown]
  - Hyperphagia [Unknown]
  - Anxiety [Unknown]
  - Sleep apnoea syndrome [Unknown]

NARRATIVE: CASE EVENT DATE: 2008
